FAERS Safety Report 25126898 (Version 1)
Quarter: 2025Q1

REPORT INFORMATION
  Report Type: Spontaneous
  Country: US (occurrence: US)
  Receive Date: 20250327
  Receipt Date: 20250327
  Transmission Date: 20250409
  Serious: No
  Sender: UCB
  Company Number: US-UCBSA-2025004635

PATIENT
  Sex: Female
  Weight: 82.962 kg

DRUGS (5)
  1. BIMZELX [Suspect]
     Active Substance: BIMEKIZUMAB-BKZX
     Indication: Psoriasis
     Dosage: 320 MILLIGRAM, EV 4 WEEKS
     Route: 058
     Dates: start: 202412
  2. FUROSEMIDE [Concomitant]
     Active Substance: FUROSEMIDE
     Indication: Product used for unknown indication
  3. CYANOCOBALAMIN [Concomitant]
     Active Substance: CYANOCOBALAMIN
     Indication: Product used for unknown indication
  4. BUPROPION [Concomitant]
     Active Substance: BUPROPION
     Indication: Product used for unknown indication
  5. HYDROXYZINE HYDROCHLORIDE [Concomitant]
     Active Substance: HYDROXYZINE HYDROCHLORIDE
     Indication: Product used for unknown indication

REACTIONS (8)
  - Urinary tract infection [Recovered/Resolved]
  - Injection site discolouration [Not Recovered/Not Resolved]
  - Injection site erythema [Unknown]
  - Injection site pruritus [Unknown]
  - Injection site swelling [Unknown]
  - Skin mass [Unknown]
  - Injection site bruising [Unknown]
  - Rash pruritic [Unknown]
